FAERS Safety Report 9736043 (Version 5)
Quarter: 2016Q1

REPORT INFORMATION
  Report Type: Spontaneous
  Country: US (occurrence: US)
  Receive Date: 20131206
  Receipt Date: 20160111
  Transmission Date: 20160526
  Serious: Yes (Disabling, Other)
  Sender: FDA-Public Use
  Company Number: US-009507513-1312USA001910

PATIENT
  Sex: Female

DRUGS (4)
  1. FOSAMAX [Suspect]
     Active Substance: ALENDRONATE SODIUM
     Dosage: 70 UNK, UNK
     Route: 048
     Dates: start: 201201, end: 201204
  2. TRANDOLAPRIL. [Concomitant]
     Active Substance: TRANDOLAPRIL
     Indication: HYPERTENSION
     Dosage: 4 MG, QD
     Dates: start: 2000
  3. FOSAMAX [Suspect]
     Active Substance: ALENDRONATE SODIUM
     Indication: OSTEOPOROSIS
     Dosage: 70 MG, UNK
     Route: 048
     Dates: start: 2002, end: 2003
  4. CLONIDINE HYDROCHLORIDE. [Concomitant]
     Active Substance: CLONIDINE HYDROCHLORIDE
     Indication: HYPERTENSION
     Dosage: UNK, QD
     Dates: start: 2000

REACTIONS (30)
  - Arthropathy [Unknown]
  - Femur fracture [Not Recovered/Not Resolved]
  - Gallbladder operation [Unknown]
  - Immune thrombocytopenic purpura [Unknown]
  - Osteoarthritis [Unknown]
  - Intervertebral disc degeneration [Unknown]
  - Foot fracture [Unknown]
  - Foot operation [Unknown]
  - Coeliac disease [Unknown]
  - Pain [Unknown]
  - Cardiac murmur [Unknown]
  - Oxygen saturation decreased [Unknown]
  - Hip fracture [Not Recovered/Not Resolved]
  - Sleep apnoea syndrome [Unknown]
  - Nocturia [Unknown]
  - Pain [Unknown]
  - Osteopenia [Unknown]
  - Sciatica [Unknown]
  - Muscular weakness [Unknown]
  - Neck surgery [Unknown]
  - Hypertonic bladder [Unknown]
  - Sleep disorder [Unknown]
  - Retinal vein occlusion [Unknown]
  - Low turnover osteopathy [Not Recovered/Not Resolved]
  - Spleen disorder [Unknown]
  - Diaphragmatic paralysis [Unknown]
  - Osteoporosis [Not Recovered/Not Resolved]
  - Plantar fasciitis [Unknown]
  - Intraneural cyst [Unknown]
  - Hypoglycaemia [Unknown]

NARRATIVE: CASE EVENT DATE: 2002
